FAERS Safety Report 8113738-X (Version None)
Quarter: 2012Q1

REPORT INFORMATION
  Report Type: 
  Country: None (occurrence: None)
  Receive Date: 20120203
  Receipt Date: 20120125
  Transmission Date: 20120608
  Serious: Yes (Hospitalization)
  Sender: FDA-Public Use
  Company Number: US-JNJFOC-20120112140

PATIENT
  Sex: Female
  Weight: 39.5 kg

DRUGS (8)
  1. MULTIPLE VITAMIN [Concomitant]
  2. IRON [Concomitant]
  3. METAMUCIL-2 [Concomitant]
  4. OXYCODONE HCL [Concomitant]
  5. FAMOTIDINE [Concomitant]
  6. CALCIUM CITRATE [Concomitant]
  7. REMICADE [Suspect]
     Indication: INFLAMMATORY BOWEL DISEASE
     Route: 042
     Dates: start: 20080115, end: 20080908
  8. ADALIMUMAB [Concomitant]
     Dates: start: 20080115, end: 20081103

REACTIONS (1)
  - ILEUS [None]
